FAERS Safety Report 13030210 (Version 10)
Quarter: 2017Q3

REPORT INFORMATION
  Report Type: Spontaneous
  Country: JP (occurrence: JP)
  Receive Date: 20161215
  Receipt Date: 20170721
  Transmission Date: 20171127
  Serious: Yes (Hospitalization, Disabling, Other)
  Sender: FDA-Public Use
  Company Number: JP-OTSUKA-2016_028922AA

PATIENT
  Age: 41 Year
  Sex: Male

DRUGS (9)
  1. LONASEN [Suspect]
     Active Substance: BLONANSERIN
     Indication: PRODUCT USED FOR UNKNOWN INDICATION
     Dosage: 24 MG, QD
     Route: 048
  2. LONASEN [Suspect]
     Active Substance: BLONANSERIN
     Dosage: UNK
     Route: 065
     Dates: start: 20161212, end: 20161227
  3. ABILIFY [Concomitant]
     Active Substance: ARIPIPRAZOLE
     Indication: SCHIZOPHRENIA
     Dosage: 24 MG, QD
     Route: 048
     Dates: start: 20150410
  4. KLARICID [Suspect]
     Active Substance: CLARITHROMYCIN
     Dosage: UNK
     Route: 065
     Dates: start: 20161121
  5. ABILIFY [Concomitant]
     Active Substance: ARIPIPRAZOLE
     Dosage: 12 MG, QD
     Route: 048
     Dates: start: 20150623, end: 20150817
  6. ABILIFY MAINTENA [Suspect]
     Active Substance: ARIPIPRAZOLE
     Dosage: 400 MG, QM
     Route: 030
     Dates: start: 20170117, end: 20170214
  7. KLARICID [Suspect]
     Active Substance: CLARITHROMYCIN
     Indication: PRODUCT USED FOR UNKNOWN INDICATION
     Dosage: UNK
     Route: 048
     Dates: start: 20161118
  8. ABILIFY MAINTENA [Suspect]
     Active Substance: ARIPIPRAZOLE
     Indication: SCHIZOPHRENIA
     Dosage: 400 MG, QM
     Route: 030
     Dates: start: 20150623, end: 20161122
  9. ZOTEPINE [Concomitant]
     Active Substance: ZOTEPINE
     Indication: PRODUCT USED FOR UNKNOWN INDICATION
     Dosage: 150 MG, QD
     Route: 048
     Dates: start: 20161212, end: 20161216

REACTIONS (3)
  - Blood creatine phosphokinase increased [Unknown]
  - Eosinophilic granulomatosis with polyangiitis [Recovering/Resolving]
  - Gait disturbance [Unknown]

NARRATIVE: CASE EVENT DATE: 2016
